FAERS Safety Report 9314466 (Version 1)
Quarter: 2013Q2

REPORT INFORMATION
  Report Type: Spontaneous
  Country: US (occurrence: US)
  Receive Date: 20130529
  Receipt Date: 20130529
  Transmission Date: 20140414
  Serious: No
  Sender: FDA-Public Use
  Company Number: US-PFIZER INC-2013160751

PATIENT
  Age: 77 Year
  Sex: 0

DRUGS (3)
  1. LIPITOR [Suspect]
     Dosage: 20 MIL
     Dates: start: 2003
  2. LIPITOR [Suspect]
     Dosage: 40
  3. LIPITOR [Suspect]
     Dosage: 80
     Dates: start: 2011

REACTIONS (2)
  - Drug hypersensitivity [Unknown]
  - Rash pruritic [Unknown]
